FAERS Safety Report 16998101 (Version 1)
Quarter: 2019Q4

REPORT INFORMATION
  Report Type: Spontaneous
  Country: GB (occurrence: GB)
  Receive Date: 20191106
  Receipt Date: 20191106
  Transmission Date: 20200122
  Serious: Yes (Other)
  Sender: FDA-Public Use
  Company Number: GB-AMGEN-GBRSP2019182186

PATIENT
  Age: 57 Year
  Sex: Female
  Weight: 68.94 kg

DRUGS (1)
  1. REPATHA [Suspect]
     Active Substance: EVOLOCUMAB
     Indication: BLOOD CHOLESTEROL INCREASED
     Dosage: 140 MILLIGRAM
     Route: 051
     Dates: start: 201611, end: 20170915

REACTIONS (10)
  - Upper respiratory tract congestion [Recovered/Resolved]
  - Decreased appetite [Not Recovered/Not Resolved]
  - Tongue discomfort [Not Recovered/Not Resolved]
  - Blood pressure increased [Unknown]
  - Hypersensitivity [Not Recovered/Not Resolved]
  - Dyspnoea [Recovered/Resolved]
  - Muscle tightness [Not Recovered/Not Resolved]
  - Nasal congestion [Recovering/Resolving]
  - Throat tightness [Not Recovered/Not Resolved]
  - Aphonia [Recovered/Resolved]

NARRATIVE: CASE EVENT DATE: 201704
